FAERS Safety Report 19004311 (Version 2)
Quarter: 2021Q1

REPORT INFORMATION
  Report Type: Spontaneous
  Country: BR (occurrence: BR)
  Receive Date: 20210312
  Receipt Date: 20210322
  Transmission Date: 20210420
  Serious: Yes (Hospitalization)
  Sender: FDA-Public Use
  Company Number: BR-GUERBET-BR-20210042

PATIENT
  Age: 67 Year
  Sex: Male
  Weight: 86 kg

DRUGS (1)
  1. OPTIRAY 320 [Suspect]
     Active Substance: IOVERSOL
     Indication: CATHETERISATION CARDIAC
     Route: 042
     Dates: start: 20210225, end: 20210225

REACTIONS (5)
  - Chest pain [Recovered/Resolved]
  - Dyspnoea [Recovering/Resolving]
  - Rash [Recovering/Resolving]
  - Hypertension [Recovering/Resolving]
  - Arteriospasm coronary [Recovering/Resolving]

NARRATIVE: CASE EVENT DATE: 20210225
